FAERS Safety Report 11178139 (Version 1)
Quarter: 2015Q2

REPORT INFORMATION
  Report Type: Spontaneous
  Country: US (occurrence: None)
  Receive Date: 20150515
  Receipt Date: 20150515
  Transmission Date: 20150821
  Serious: Yes (Hospitalization, Other)
  Sender: FDA-Public Use
  Company Number: 2015000547

PATIENT
  Age: 65 Year
  Sex: Male
  Weight: 120.6 kg

DRUGS (4)
  1. GEMFIBROZIL (GEMFIBROZIL) [Concomitant]
     Active Substance: GEMFIBROZIL
  2. CIMZIA [Suspect]
     Active Substance: CERTOLIZUMAB PEGOL
     Indication: CROHN^S DISEASE
     Route: 058
     Dates: start: 200809, end: 201501
  3. LISINOPRIL (LISINOPRIL) [Concomitant]
     Active Substance: LISINOPRIL
  4. NEXIUM [Concomitant]
     Active Substance: ESOMEPRAZOLE MAGNESIUM

REACTIONS (2)
  - Thrombosis [None]
  - Pneumonia [None]

NARRATIVE: CASE EVENT DATE: 20141231
